FAERS Safety Report 13520768 (Version 1)
Quarter: 2017Q2

REPORT INFORMATION
  Report Type: Spontaneous
  Country: US (occurrence: US)
  Receive Date: 20170508
  Receipt Date: 20170508
  Transmission Date: 20170830
  Serious: No
  Sender: FDA-Public Use
  Company Number: US-TEVA-752273USA

PATIENT
  Sex: Female

DRUGS (2)
  1. FAMOTIDINE. [Suspect]
     Active Substance: FAMOTIDINE
     Indication: DYSPEPSIA
     Route: 065
  2. FAMOTIDINE. [Suspect]
     Active Substance: FAMOTIDINE
     Indication: ABDOMINAL DISCOMFORT

REACTIONS (2)
  - Pollakiuria [Unknown]
  - Dysgeusia [Unknown]
